FAERS Safety Report 4488926-4 (Version None)
Quarter: 2004Q4

REPORT INFORMATION
  Report Type: 
  Country: None (occurrence: None)
  Receive Date: 20041029
  Receipt Date: 20041025
  Transmission Date: 20050328
  Serious: Yes (Death, Hospitalization)
  Sender: FDA-Public Use
  Company Number: RO-ABBOTT-04P-135-0278671-00

PATIENT
  Sex: Female
  Weight: 75 kg

DRUGS (6)
  1. KALETRA [Suspect]
     Indication: HIV INFECTION
     Route: 048
     Dates: start: 20041001, end: 20041021
  2. LAMIVUDINE [Concomitant]
     Indication: HIV INFECTION
     Dates: start: 20041001, end: 20041021
  3. STAVUDINE [Concomitant]
     Indication: HIV INFECTION
     Dates: start: 20041001, end: 20041021
  4. CEFTRIAXONE SODIUM [Concomitant]
     Indication: PYREXIA
     Dates: start: 20041019, end: 20041021
  5. FLUCONAZOLE [Concomitant]
     Indication: CANDIDIASIS
     Dates: start: 20040928, end: 20041021
  6. ACYCLOVIR [Concomitant]
     Indication: HERPES SIMPLEX
     Dates: start: 20041019, end: 20041021

REACTIONS (2)
  - COMA [None]
  - DEATH [None]
